FAERS Safety Report 7933026-1 (Version None)
Quarter: 2011Q4

REPORT INFORMATION
  Report Type: 
  Country: None (occurrence: None)
  Receive Date: 20111122
  Receipt Date: 20111028
  Transmission Date: 20120403
  Serious: Yes (Hospitalization, Other)
  Sender: FDA-Public Use
  Company Number: GB-UCBSA-045744

PATIENT
  Age: 42 Year
  Sex: Female

DRUGS (5)
  1. KEPPRA [Suspect]
  2. TOPIRAMATE [Concomitant]
  3. LAMOTRIGINE [Concomitant]
  4. SODIUM VALPROATE  SR [Concomitant]
     Dosage: SR. 500 MG
  5. TOPIRAMATE [Concomitant]

REACTIONS (4)
  - HAMARTOMA [None]
  - AGGRESSION [None]
  - CONVULSION [None]
  - INAPPROPRIATE AFFECT [None]
